FAERS Safety Report 12088968 (Version 3)
Quarter: 2016Q2

REPORT INFORMATION
  Report Type: Spontaneous
  Country: JP (occurrence: JP)
  Receive Date: 20160218
  Receipt Date: 20160622
  Transmission Date: 20160815
  Serious: Yes (Hospitalization)
  Sender: FDA-Public Use
  Company Number: PHJP2016JP002780

PATIENT
  Age: 46 Year
  Sex: Male
  Weight: 128 kg

DRUGS (6)
  1. COSENTYX [Suspect]
     Active Substance: SECUKINUMAB
     Indication: PSORIATIC ARTHROPATHY
     Dosage: 300 MG, PER ADMINISTRATION
     Route: 058
     Dates: start: 20160201
  2. COSENTYX [Suspect]
     Active Substance: SECUKINUMAB
     Dosage: 300 MG, PER ADMINISTRATION
     Route: 058
     Dates: start: 20160215
  3. COSENTYX [Suspect]
     Active Substance: SECUKINUMAB
     Dosage: 300 MG, UNK
     Route: 058
     Dates: start: 20160509
  4. COSENTYX [Suspect]
     Active Substance: SECUKINUMAB
     Dosage: 300 MG, PER ADMINISTRATION
     Route: 058
     Dates: start: 20160222
  5. COSENTYX [Suspect]
     Active Substance: SECUKINUMAB
     Dosage: AFTER A 6-WEEK INTERAVAL
     Route: 058
  6. COSENTYX [Suspect]
     Active Substance: SECUKINUMAB
     Dosage: 300 MG, PER ADMINISTRATION
     Route: 058
     Dates: start: 20160210

REACTIONS (6)
  - Psoriatic arthropathy [Unknown]
  - Arthralgia [Recovered/Resolved]
  - C-reactive protein increased [Unknown]
  - Inflammation [Unknown]
  - Inappropriate schedule of drug administration [Unknown]
  - Drug ineffective [Unknown]

NARRATIVE: CASE EVENT DATE: 20160208
